FAERS Safety Report 8326422-4 (Version None)
Quarter: 2012Q2

REPORT INFORMATION
  Report Type: 
  Country: None (occurrence: None)
  Receive Date: 20120501
  Receipt Date: 20120420
  Transmission Date: 20120825
  Serious: Yes (Hospitalization, Other)
  Sender: FDA-Public Use
  Company Number: US-MERCK-1106USA01394

PATIENT
  Age: 73 Year
  Sex: Female

DRUGS (18)
  1. FOSAMAX [Suspect]
     Indication: PROPHYLAXIS
     Route: 048
     Dates: start: 20010124, end: 20050914
  2. BUSPAR [Concomitant]
     Route: 065
  3. FOSAMAX [Suspect]
     Route: 048
     Dates: start: 20000101
  4. PRILOSEC [Concomitant]
     Route: 048
  5. COGENTIN [Concomitant]
     Route: 048
  6. HALDOL [Concomitant]
     Route: 065
  7. DITROPAN [Concomitant]
     Route: 065
  8. CALCIUM (UNSPECIFIED) [Concomitant]
     Route: 065
  9. TRAZODONE HYDROCHLORIDE [Concomitant]
     Route: 065
  10. DOCUSATE SODIUM [Concomitant]
     Route: 065
  11. ZYPREXA [Concomitant]
     Route: 065
     Dates: start: 20070109
  12. VICODIN [Concomitant]
     Route: 065
  13. FOSAMAX [Suspect]
     Route: 048
     Dates: start: 20060101
  14. ALENDRONATE SODIUM [Suspect]
     Indication: PROPHYLAXIS
     Route: 048
  15. PHENERGAN HCL [Concomitant]
     Route: 065
  16. TRAMADOL HCL [Concomitant]
     Route: 065
  17. NITROFURANTOIN [Concomitant]
     Route: 065
  18. CALCIUM CARBONATE [Concomitant]
     Route: 065

REACTIONS (47)
  - GASTRIC ULCER [None]
  - ATRIAL FIBRILLATION [None]
  - VOMITING [None]
  - SPINAL OSTEOARTHRITIS [None]
  - BLOOD URINE PRESENT [None]
  - ADVERSE DRUG REACTION [None]
  - CEREBRAL INFARCTION [None]
  - EXCORIATION [None]
  - CYSTITIS NONINFECTIVE [None]
  - RENAL CYST [None]
  - OESOPHAGITIS [None]
  - CEREBRAL SMALL VESSEL ISCHAEMIC DISEASE [None]
  - INTERVERTEBRAL DISC DEGENERATION [None]
  - SCAPULA FRACTURE [None]
  - OESOPHAGEAL ULCER [None]
  - URINARY TRACT INFECTION [None]
  - SINUS TACHYCARDIA [None]
  - DEPRESSION [None]
  - HYPERLIPIDAEMIA [None]
  - HAEMANGIOMA OF LIVER [None]
  - CEREBRAL ATROPHY [None]
  - FEMUR FRACTURE [None]
  - MENTAL STATUS CHANGES [None]
  - TOXIC ENCEPHALOPATHY [None]
  - GASTROINTESTINAL HAEMORRHAGE [None]
  - ELECTROLYTE IMBALANCE [None]
  - ANXIETY [None]
  - DIVERTICULUM [None]
  - BREAST MASS [None]
  - HYPOVOLAEMIA [None]
  - CARDIAC MURMUR [None]
  - HIATUS HERNIA [None]
  - IMPAIRED HEALING [None]
  - HYPERCHOLESTEROLAEMIA [None]
  - HAEMORRHAGIC ANAEMIA [None]
  - HYPERCALCAEMIA [None]
  - POST PROCEDURAL HAEMORRHAGE [None]
  - BACTERIAL TEST POSITIVE [None]
  - GASTROOESOPHAGEAL REFLUX DISEASE [None]
  - ANAEMIA [None]
  - FALL [None]
  - DEMENTIA [None]
  - CONSTIPATION [None]
  - OSTEOPENIA [None]
  - OSTEOARTHRITIS [None]
  - KYPHOSIS [None]
  - DISLOCATION OF VERTEBRA [None]
